FAERS Safety Report 7469717-9 (Version None)
Quarter: 2011Q2

REPORT INFORMATION
  Report Type: 
  Country: None (occurrence: None)
  Receive Date: 20110510
  Receipt Date: 20110505
  Transmission Date: 20111010
  Serious: Yes (Hospitalization)
  Sender: FDA-Public Use
  Company Number: FR-BRISTOL-MYERS SQUIBB COMPANY-15726722

PATIENT
  Age: 47 Year
  Sex: Male

DRUGS (3)
  1. GLEEVEC [Suspect]
     Route: 048
     Dates: start: 20050101
  2. SPRYCEL [Suspect]
     Route: 048
  3. HYDREA [Suspect]
     Route: 048
     Dates: start: 19860101, end: 19910101

REACTIONS (1)
  - SQUAMOUS CELL CARCINOMA [None]
